FAERS Safety Report 6498874-6 (Version None)
Quarter: 2009Q4

REPORT INFORMATION
  Report Type: 
  Country: None (occurrence: None)
  Receive Date: 20091215
  Receipt Date: 20091203
  Transmission Date: 20100525
  Serious: Yes (Other)
  Sender: FDA-Public Use
  Company Number: FR-B.I. PHARMACEUTICALS,INC./RIDGEFIELD-2009-DE-07060GD

PATIENT
  Age: 62 Year
  Sex: Female

DRUGS (20)
  1. NEVIRAPINE [Suspect]
     Indication: HIV INFECTION
     Dosage: 400 MG
  2. FLUINDIONE [Suspect]
     Indication: DEEP VEIN THROMBOSIS
     Dosage: 20 MG
     Route: 048
  3. FLUINDIONE [Suspect]
     Dosage: 25 MG
     Route: 048
  4. FLUINDIONE [Suspect]
     Dosage: 30 MG
     Route: 048
  5. FLUINDIONE [Suspect]
     Dosage: 35 MG
     Route: 048
  6. FLUINDIONE [Suspect]
     Dosage: 40 MG
     Route: 048
  7. WARFARIN SODIUM [Suspect]
     Indication: DEEP VEIN THROMBOSIS
     Dosage: 2 MG
  8. WARFARIN SODIUM [Suspect]
     Dosage: 4 MG
  9. WARFARIN SODIUM [Suspect]
     Dosage: 5 MG
  10. WARFARIN SODIUM [Suspect]
     Dosage: 6 MG
  11. OMEPRAZOLE [Concomitant]
     Dosage: 20 MG
  12. ZIDOVUDINE [Concomitant]
     Indication: HIV INFECTION
     Dosage: 600 MG
  13. LAMIVUDINE [Concomitant]
     Indication: HIV INFECTION
     Dosage: 300 MG
  14. GABAPENTIN [Concomitant]
     Dosage: 300 MG
  15. RILMENIDINE [Concomitant]
     Dosage: 1 MG
  16. NICARDIPINE HYDROCHLORIDE [Concomitant]
     Dosage: 150 MG
     Route: 048
  17. PERINDOPRIL [Concomitant]
     Dosage: 4 MG
  18. ATENOLOL [Concomitant]
     Dosage: 100 MG
  19. ALPRAZOLAM [Concomitant]
     Dosage: 0.25 MG
  20. ENOXAPARIN SODIUM [Concomitant]
     Indication: DEEP VEIN THROMBOSIS
     Dosage: 16000 U

REACTIONS (2)
  - DRUG INEFFECTIVE [None]
  - DRUG INTERACTION [None]
